FAERS Safety Report 17629959 (Version 3)
Quarter: 2022Q2

REPORT INFORMATION
  Report Type: Spontaneous
  Country: JP (occurrence: JP)
  Receive Date: 20200406
  Receipt Date: 20220607
  Transmission Date: 20220720
  Serious: Yes (Other)
  Sender: FDA-Public Use
  Company Number: JP-PFIZER INC-2019417449

PATIENT
  Age: 58 Year
  Sex: Female
  Weight: 41.6 kg

DRUGS (4)
  1. LORBRENA [Suspect]
     Active Substance: LORLATINIB
     Indication: Non-small cell lung cancer
     Dosage: 100 MG, DAILY
     Route: 048
     Dates: start: 20181204, end: 20190423
  2. LORBRENA [Suspect]
     Active Substance: LORLATINIB
     Dosage: 100 MG, DAILY
     Dates: start: 20190519, end: 20190524
  3. LORBRENA [Suspect]
     Active Substance: LORLATINIB
     Dosage: 75 MG, DAILY
     Dates: start: 20190525, end: 20191008
  4. LORBRENA [Suspect]
     Active Substance: LORLATINIB
     Dosage: 50 MG, DAILY
     Dates: start: 20191009, end: 20191015

REACTIONS (13)
  - Neuropathy peripheral [Recovered/Resolved]
  - Hemiparesis [Recovered/Resolved]
  - Neuropathy peripheral [Unknown]
  - Parkinsonism [Recovered/Resolved]
  - Dysarthria [Unknown]
  - Alopecia [Unknown]
  - Hyperlipidaemia [Recovering/Resolving]
  - Arthralgia [Recovered/Resolved]
  - Oedema [Recovered/Resolved]
  - Musculoskeletal stiffness [Recovered/Resolved]
  - Hyperreflexia [Recovered/Resolved]
  - Neoplasm progression [Recovered/Resolved]
  - Oedema peripheral [Unknown]

NARRATIVE: CASE EVENT DATE: 20190101
